FAERS Safety Report 11117253 (Version 1)
Quarter: 2015Q2

REPORT INFORMATION
  Report Type: Spontaneous
  Country: US (occurrence: US)
  Receive Date: 20150515
  Receipt Date: 20150515
  Transmission Date: 20150821
  Serious: Yes (Hospitalization)
  Sender: FDA-Public Use
  Company Number: US-ASTRAZENECA-2015SE43613

PATIENT
  Age: 702 Month
  Sex: Male
  Weight: 91.6 kg

DRUGS (8)
  1. SEROQUEL XR [Suspect]
     Active Substance: QUETIAPINE FUMARATE
     Indication: MAJOR DEPRESSION
     Dosage: 300 TO 400 MG; AT NIGHT
     Route: 048
     Dates: start: 2008
  2. SEROQUEL XR [Suspect]
     Active Substance: QUETIAPINE FUMARATE
     Indication: MAJOR DEPRESSION
     Dosage: 300 TO 400 MG; AT NIGHT
     Route: 048
     Dates: start: 2011
  3. REMERON [Concomitant]
     Active Substance: MIRTAZAPINE
     Route: 048
  4. SEROQUEL XR [Suspect]
     Active Substance: QUETIAPINE FUMARATE
     Indication: INSOMNIA
     Dosage: 300 TO 400 MG; AT NIGHT
     Route: 048
     Dates: start: 2008
  5. SEROQUEL XR [Suspect]
     Active Substance: QUETIAPINE FUMARATE
     Indication: INSOMNIA
     Dosage: 300 TO 400 MG; AT NIGHT
     Route: 048
     Dates: start: 2011
  6. SEROQUEL XR [Suspect]
     Active Substance: QUETIAPINE FUMARATE
     Indication: INSOMNIA
     Dosage: 200 TO 300 MG; AT NIGHT
     Route: 048
     Dates: start: 2011
  7. SEROQUEL XR [Suspect]
     Active Substance: QUETIAPINE FUMARATE
     Indication: MAJOR DEPRESSION
     Dosage: 200 TO 300 MG; AT NIGHT
     Route: 048
     Dates: start: 2011
  8. PAXIL [Concomitant]
     Active Substance: PAROXETINE HYDROCHLORIDE
     Indication: ANXIETY
     Route: 048

REACTIONS (6)
  - Anxiety [Not Recovered/Not Resolved]
  - Humerus fracture [Unknown]
  - Weight decreased [Unknown]
  - Insomnia [Not Recovered/Not Resolved]
  - Road traffic accident [Unknown]
  - Depression [Not Recovered/Not Resolved]

NARRATIVE: CASE EVENT DATE: 201502
